FAERS Safety Report 4388879-3 (Version None)
Quarter: 2004Q2

REPORT INFORMATION
  Report Type: 
  Country: None (occurrence: None)
  Receive Date: 20040628
  Receipt Date: 20040618
  Transmission Date: 20050107
  Serious: Yes (Hospitalization)
  Sender: FDA-Public Use
  Company Number: FR-JNJFOC-20040604696

PATIENT
  Age: 33 Year
  Sex: Female

DRUGS (2)
  1. REMICADE [Suspect]
     Indication: ANKYLOSING SPONDYLITIS
     Dosage: INTRAVENOUS
     Route: 042
     Dates: start: 20000920, end: 20040315
  2. SOLU-MEDROL [Suspect]
     Indication: ANKYLOSING SPONDYLITIS
     Dates: start: 20030920, end: 20040315

REACTIONS (1)
  - NON-HODGKIN'S LYMPHOMA [None]
